FAERS Safety Report 9377037 (Version 1)
Quarter: 2013Q3

REPORT INFORMATION
  Report Type: Spontaneous
  Country: FR (occurrence: FR)
  Receive Date: 20130701
  Receipt Date: 20130701
  Transmission Date: 20140515
  Serious: Yes (Hospitalization)
  Sender: FDA-Public Use
  Company Number: FR-PFIZER INC-2013190734

PATIENT
  Age: 73 Year
  Sex: Female

DRUGS (5)
  1. AMLOR [Suspect]
     Indication: HYPERTENSION
     Dosage: 5 MG, 1X/DAY
     Route: 048
     Dates: end: 201303
  2. COOLMETEC [Suspect]
     Indication: HYPERTENSION
     Dosage: 1 DF, 1X/DAY, 12.5/40 MG (1 IN 1 D)
     Route: 048
     Dates: end: 201303
  3. PROZAC [Suspect]
     Indication: DEPRESSION
     Dosage: 10 MG, 1X/DAY
     Route: 048
     Dates: end: 201303
  4. LEXOMIL ROCHE [Suspect]
     Indication: ANXIETY
     Dosage: 1 DF, 1X/DAY
     Route: 048
     Dates: end: 201303
  5. CARDENSIEL [Suspect]
     Indication: HYPERTENSION
     Dosage: 10 MG, 1X/DAY
     Route: 048
     Dates: end: 2013

REACTIONS (1)
  - Hyponatraemia [Recovered/Resolved]
